FAERS Safety Report 9165920 (Version 1)
Quarter: 2013Q1

REPORT INFORMATION
  Report Type: Spontaneous
  Country: US (occurrence: None)
  Receive Date: 20130301
  Receipt Date: 20130301
  Transmission Date: 20140127
  Serious: Yes (Other)
  Sender: FDA-Public Use
  Company Number: 20130061

PATIENT
  Age: 13 Year
  Sex: Male

DRUGS (1)
  1. DEXAMETHASONE SODIUM PHOSPHATE INJECTION, USP (4901-25) 4 MG/ML [Suspect]
     Indication: RADIATION NECROSIS

REACTIONS (4)
  - Hypertension [None]
  - Body fat disorder [None]
  - Condition aggravated [None]
  - Skin striae [None]
